FAERS Safety Report 4852362-9 (Version None)
Quarter: 2005Q4

REPORT INFORMATION
  Report Type: 
  Country: None (occurrence: None)
  Receive Date: 20051213
  Receipt Date: 20051130
  Transmission Date: 20060501
  Serious: Yes (Hospitalization)
  Sender: FDA-Public Use
  Company Number: PHEH2005US13038

PATIENT
  Age: 57 Year
  Sex: Male

DRUGS (2)
  1. DIOVAN HCT [Suspect]
     Indication: HYPERTENSION
     Dosage: 80/12.5 MG
     Dates: start: 20020101, end: 20051130
  2. TEGRETOL [Concomitant]

REACTIONS (4)
  - ANGIOPLASTY [None]
  - BLOOD POTASSIUM DECREASED [None]
  - CARDIAC PACEMAKER INSERTION [None]
  - EXTRASYSTOLES [None]
